FAERS Safety Report 8977637 (Version 1)
Quarter: 2012Q4

REPORT INFORMATION
  Report Type: 
  Country: BR (occurrence: BR)
  Receive Date: 20121220
  Receipt Date: 20121220
  Transmission Date: 20130627
  Serious: Yes (Hospitalization)
  Sender: FDA-Public Use
  Company Number: BR-GLAXOSMITHKLINE-B0847971A

PATIENT
  Age: 25 Year
  Sex: Female

DRUGS (4)
  1. VOTRIENT [Suspect]
     Indication: SYNOVIAL SARCOMA METASTATIC
     Dosage: 800MG Per day
     Route: 048
     Dates: start: 20121119, end: 20121120
  2. CODEINE [Concomitant]
  3. DIPYRONE [Concomitant]
  4. ONDANSETRON [Concomitant]

REACTIONS (8)
  - Pain [Recovered/Resolved]
  - Malaise [Recovered/Resolved]
  - Off label use [Unknown]
  - Pyrexia [Recovered/Resolved]
  - Abdominal distension [Recovered/Resolved]
  - Colitis [Recovered/Resolved]
  - Synovial sarcoma metastatic [Not Recovered/Not Resolved]
  - Dyspnoea exertional [Unknown]
